FAERS Safety Report 23255408 (Version 1)
Quarter: 2023Q4

REPORT INFORMATION
  Report Type: Report from Study
  Country: TW (occurrence: TW)
  Receive Date: 20231203
  Receipt Date: 20231203
  Transmission Date: 20240110
  Serious: Yes (Hospitalization, Other)
  Sender: FDA-Public Use
  Company Number: TW-Merck Healthcare KGaA-2023489234

PATIENT
  Age: 83 Year
  Sex: Male

DRUGS (1)
  1. CETUXIMAB [Suspect]
     Active Substance: CETUXIMAB
     Indication: Product used for unknown indication
     Dosage: 400 MG/M2, 2/M (ONCE IN 2 WEEKS)
     Dates: start: 20230603

REACTIONS (8)
  - Lower gastrointestinal haemorrhage [Unknown]
  - Hepatic failure [Unknown]
  - Acute kidney injury [Unknown]
  - Shock [Unknown]
  - Gastrointestinal infection [Unknown]
  - Somnolence [Unknown]
  - Decreased appetite [Unknown]
  - Off label use [Unknown]
